FAERS Safety Report 6057677-7 (Version None)
Quarter: 2009Q1

REPORT INFORMATION
  Report Type: 
  Country: None (occurrence: None)
  Receive Date: 20090129
  Receipt Date: 20090121
  Transmission Date: 20090719
  Serious: Yes (Death)
  Sender: FDA-Public Use
  Company Number: US-JNJFOC-20090105782

PATIENT
  Sex: Female
  Weight: 86.18 kg

DRUGS (7)
  1. FENTANYL [Suspect]
     Indication: BACK PAIN
     Route: 062
  2. TOPIRAMATE [Suspect]
     Indication: DRUG USE FOR UNKNOWN INDICATION
  3. MEPERIDINE HCL [Suspect]
     Indication: DRUG USE FOR UNKNOWN INDICATION
  4. PROMETHAZINE [Suspect]
     Indication: DRUG USE FOR UNKNOWN INDICATION
  5. DIAZEPAM [Suspect]
     Indication: DRUG USE FOR UNKNOWN INDICATION
  6. METHADONE HCL [Suspect]
     Indication: DRUG USE FOR UNKNOWN INDICATION
  7. OXYCODONE HCL [Suspect]
     Indication: DRUG USE FOR UNKNOWN INDICATION

REACTIONS (2)
  - DRUG TOXICITY [None]
  - WRONG TECHNIQUE IN DRUG USAGE PROCESS [None]
